FAERS Safety Report 14581662 (Version 1)
Quarter: 2018Q1

REPORT INFORMATION
  Report Type: Spontaneous
  Country: LT (occurrence: LT)
  Receive Date: 20180228
  Receipt Date: 20180228
  Transmission Date: 20180509
  Serious: Yes (Other)
  Sender: FDA-Public Use
  Company Number: LT-GLAXOSMITHKLINE-LT2018GSK029565

PATIENT
  Age: 63 Year
  Sex: Male

DRUGS (3)
  1. INCRUSE ELLIPTA [Suspect]
     Active Substance: UMECLIDINIUM BROMIDE
     Indication: OBSTRUCTIVE AIRWAYS DISORDER
     Dosage: 55 ?G, UNK
     Route: 055
  2. INCRUSE ELLIPTA [Suspect]
     Active Substance: UMECLIDINIUM BROMIDE
     Indication: EMPHYSEMA
  3. INCRUSE ELLIPTA [Suspect]
     Active Substance: UMECLIDINIUM BROMIDE
     Indication: BRONCHITIS CHRONIC

REACTIONS (1)
  - Arrhythmia [Unknown]
